FAERS Safety Report 5244713-0 (Version None)
Quarter: 2007Q1

REPORT INFORMATION
  Report Type: 
  Country: None (occurrence: None)
  Receive Date: 20061201
  Receipt Date: 20060808
  Transmission Date: 20070707
  Serious: No
  Sender: FDA-Public Use
  Company Number: 2006PV019075

PATIENT
  Age: 57 Year
  Sex: Male
  Weight: 102.9665 kg

DRUGS (7)
  1. BYETTA [Suspect]
     Indication: DIABETES MELLITUS NON-INSULIN-DEPENDENT
     Dosage: SEE IMAGE
     Route: 058
     Dates: start: 20060101
  2. BYETTA [Suspect]
     Indication: DIABETES MELLITUS NON-INSULIN-DEPENDENT
     Dosage: SEE IMAGE
     Route: 058
     Dates: start: 20060101
  3. METFORMIN [Concomitant]
  4. PRANDIN [Concomitant]
  5. ASPIRIN [Concomitant]
  6. DIURETIC [Concomitant]
  7. LIPITOR [Concomitant]

REACTIONS (1)
  - WEIGHT DECREASED [None]
